FAERS Safety Report 22711793 (Version 6)
Quarter: 2024Q4

REPORT INFORMATION
  Report Type: Spontaneous
  Country: US (occurrence: US)
  Receive Date: 20230717
  Receipt Date: 20241210
  Transmission Date: 20250115
  Serious: Yes (Other)
  Sender: PFIZER
  Company Number: US-PFIZER INC-PV202300090755

PATIENT
  Age: 77 Year
  Sex: Male

DRUGS (2)
  1. BRAFTOVI [Suspect]
     Active Substance: ENCORAFENIB
     Indication: Papillary thyroid cancer
     Dosage: TAKE 4 CAPSULES (300 MG) ONCE DAILY, 30-DAY SUPPLY
     Route: 048
  2. MEKTOVI [Suspect]
     Active Substance: BINIMETINIB
     Indication: Papillary thyroid cancer
     Dosage: TAKE 2 TABLETS (30 MG) TWICE DAILY, 30-DAY SUPPLY
     Route: 048

REACTIONS (3)
  - Blindness [Unknown]
  - Deafness [Not Recovered/Not Resolved]
  - Off label use [Unknown]
